FAERS Safety Report 5589390-4 (Version None)
Quarter: 2008Q1

REPORT INFORMATION
  Report Type: 
  Country: None (occurrence: None)
  Receive Date: 20080109
  Receipt Date: 20071226
  Transmission Date: 20080703
  Serious: Yes (Death, Hospitalization)
  Sender: FDA-Public Use
  Company Number: US021789

PATIENT
  Age: 70 Year
  Sex: Male

DRUGS (15)
  1. TRISENOX [Suspect]
     Indication: ACUTE PROMYELOCYTIC LEUKAEMIA
     Dosage: 8.4 MG QD INTRAVENOUS DRIP
     Route: 041
     Dates: start: 20071112, end: 20071119
  2. CYTARABINE [Suspect]
     Dosage: 40 MG QD INTRATHECAL
     Route: 037
     Dates: start: 20071109, end: 20071109
  3. CYTARABINE [Suspect]
     Dosage: 40 MG QD INTRATHECAL
     Route: 037
     Dates: start: 20071113, end: 20071113
  4. CYTARABINE [Suspect]
     Dosage: 40 MG QD INTRATHECAL
     Route: 037
     Dates: start: 20071116, end: 20071116
  5. CYTARABINE [Suspect]
     Dosage: 40 MG QD INTRATHECAL
     Route: 037
     Dates: start: 20071119, end: 20071119
  6. CYTARABINE [Suspect]
     Dosage: 40 MG QD INTRATHECAL
     Route: 037
     Dates: start: 20071122, end: 20071122
  7. METHOTREXATE [Suspect]
     Dosage: 15 MG QD INTRATHECAL
     Route: 037
     Dates: start: 20071109, end: 20071109
  8. METHOTREXATE [Suspect]
     Dosage: 15 MG QD INTRATHECAL
     Route: 037
     Dates: start: 20071113, end: 20071113
  9. METHOTREXATE [Suspect]
     Dosage: 15 MG QD INTRATHECAL
     Route: 037
     Dates: start: 20071116, end: 20071116
  10. METHOTREXATE [Suspect]
     Dosage: 15 MG QD INTRATHECAL
     Route: 037
     Dates: start: 20071119, end: 20071119
  11. METHOTREXATE [Suspect]
     Dosage: 15 MG QD INTRATHECAL
     Route: 037
     Dates: start: 20071122, end: 20071122
  12. PREDNISOLONE ACETATE [Concomitant]
  13. PREDNISOLONE [Concomitant]
  14. RANITIDINE HYDROCHLORIDE [Concomitant]
  15. FLUCONAZOLE [Concomitant]

REACTIONS (9)
  - ALANINE AMINOTRANSFERASE INCREASED [None]
  - ASPARTATE AMINOTRANSFERASE INCREASED [None]
  - BLOOD LACTATE DEHYDROGENASE INCREASED [None]
  - DEPRESSED LEVEL OF CONSCIOUSNESS [None]
  - GAMMA-GLUTAMYLTRANSFERASE INCREASED [None]
  - HERPES SIMPLEX [None]
  - PANCYTOPENIA [None]
  - RESPIRATORY FAILURE [None]
  - SHOCK [None]
